FAERS Safety Report 11923676 (Version 3)
Quarter: 2016Q1

REPORT INFORMATION
  Report Type: Spontaneous
  Country: US (occurrence: US)
  Receive Date: 20160118
  Receipt Date: 20160311
  Transmission Date: 20160526
  Serious: Yes (Hospitalization)
  Sender: FDA-Public Use
  Company Number: US-PFIZER INC-2016015378

PATIENT
  Age: 10 Year
  Sex: Female
  Weight: 36.74 kg

DRUGS (3)
  1. CLOMATIN [Concomitant]
     Dosage: 0.01 MG, 2X/DAY
  2. FLUOXETINE [Concomitant]
     Active Substance: FLUOXETINE HYDROCHLORIDE
     Indication: IMPULSIVE BEHAVIOUR
     Dosage: 30 MG, 1X/DAY
     Dates: start: 201412
  3. QUILLIVANT XR [Suspect]
     Active Substance: METHYLPHENIDATE HYDROCHLORIDE
     Indication: ATTENTION DEFICIT/HYPERACTIVITY DISORDER
     Dosage: 6.5 ML, 1X/DAY
     Dates: start: 201411

REACTIONS (2)
  - Underdose [Recovered/Resolved]
  - Anxiety [Not Recovered/Not Resolved]

NARRATIVE: CASE EVENT DATE: 201501
